FAERS Safety Report 10689687 (Version 3)
Quarter: 2015Q1

REPORT INFORMATION
  Report Type: Spontaneous
  Country: US (occurrence: US)
  Receive Date: 20150105
  Receipt Date: 20150220
  Transmission Date: 20150720
  Serious: No
  Sender: FDA-Public Use
  Company Number: US-PFIZER INC-2014363494

PATIENT
  Age: 75 Year
  Sex: Female
  Weight: 80 kg

DRUGS (2)
  1. EFFEXOR XR [Suspect]
     Active Substance: VENLAFAXINE HYDROCHLORIDE
     Indication: FIBROMYALGIA
     Dosage: UNK
     Dates: start: 201402
  2. CHANTIX [Suspect]
     Active Substance: VARENICLINE TARTRATE
     Indication: SMOKING CESSATION THERAPY
     Dosage: 10 MG, 2X/DAY
     Dates: start: 20141016, end: 20150104

REACTIONS (2)
  - Vomiting [Recovered/Resolved]
  - Abdominal pain upper [Recovered/Resolved]
